FAERS Safety Report 24808424 (Version 1)
Quarter: 2025Q1

REPORT INFORMATION
  Report Type: Spontaneous
  Country: IN (occurrence: IN)
  Receive Date: 20250106
  Receipt Date: 20250106
  Transmission Date: 20250408
  Serious: No
  Sender: ALKEM
  Company Number: IN-ALKEM LABORATORIES LIMITED-IN-ALKEM-2024-20936

PATIENT
  Age: 12 Year
  Sex: Female

DRUGS (2)
  1. TACROLIMUS [Suspect]
     Active Substance: TACROLIMUS
     Indication: Vitiligo
     Route: 065
  2. BIMATOPROST [Concomitant]
     Active Substance: BIMATOPROST
     Indication: Vitiligo
     Dosage: UNK, QD (OPHTHALMIC SOLUTION)
     Route: 065

REACTIONS (1)
  - Therapy non-responder [Unknown]
